FAERS Safety Report 15900612 (Version 4)
Quarter: 2019Q2

REPORT INFORMATION
  Report Type: Spontaneous
  Country: JP (occurrence: JP)
  Receive Date: 20190201
  Receipt Date: 20190403
  Transmission Date: 20190711
  Serious: Yes (Death)
  Sender: FDA-Public Use
  Company Number: JP-OTSUKA-2019_002727AA

PATIENT
  Sex: Female

DRUGS (14)
  1. HALCION [Concomitant]
     Active Substance: TRIAZOLAM
     Indication: PRODUCT USED FOR UNKNOWN INDICATION
     Dosage: 0.5 MG, DAILY DOSE
     Route: 048
     Dates: start: 20180705, end: 20181129
  2. REXULTI [Suspect]
     Active Substance: BREXPIPRAZOLE
     Indication: SCHIZOPHRENIA
     Dosage: 2 MG, DAILY DOSE
     Route: 048
     Dates: start: 20181115, end: 20190125
  3. REXULTI [Suspect]
     Active Substance: BREXPIPRAZOLE
     Dosage: 1 MG, DAILY DOSE
     Route: 048
     Dates: start: 20181101, end: 20181114
  4. LONASEN [Suspect]
     Active Substance: BLONANSERIN
     Indication: PRODUCT USED FOR UNKNOWN INDICATION
     Dosage: 2 MG, DAILY DOSE
     Route: 048
     Dates: start: 20181129, end: 20181213
  5. LONASEN [Suspect]
     Active Substance: BLONANSERIN
     Dosage: 12 MG, DAILY DOSE
     Route: 048
     Dates: start: 20181101, end: 20181114
  6. LEVOTOMIN [Suspect]
     Active Substance: LEVOMEPROMAZINE
     Indication: SCHIZOPHRENIA
     Dosage: 100 MG, DAILY DOSE
     Route: 048
     Dates: start: 20180726, end: 20190125
  7. AMOBAN [Concomitant]
     Active Substance: ZOPICLONE
     Indication: PRODUCT USED FOR UNKNOWN INDICATION
     Dosage: 10 MG, DAILY DOSE
     Route: 048
     Dates: start: 20181227, end: 20190125
  8. PURSENNID [SENNOSIDE A+B CALCIUM] [Concomitant]
     Active Substance: SENNOSIDES A AND B
     Indication: PRODUCT USED FOR UNKNOWN INDICATION
     Dosage: 48 MG, DAILY DOSE
     Route: 048
     Dates: start: 20181115, end: 20190125
  9. LONASEN [Suspect]
     Active Substance: BLONANSERIN
     Dosage: 4 MG, DAILY DOSE
     Route: 048
     Dates: start: 20181115, end: 20181128
  10. SOLANAX [Concomitant]
     Active Substance: ALPRAZOLAM
     Indication: PRODUCT USED FOR UNKNOWN INDICATION
     Dosage: 0.8 MG, PRN FOR IRRITATION
     Route: 048
     Dates: start: 20180906, end: 20190125
  11. TEGRETOL [Suspect]
     Active Substance: CARBAMAZEPINE
     Indication: PRODUCT USED FOR UNKNOWN INDICATION
     Dosage: 400 MG, DAILY DOSE
     Route: 048
     Dates: start: 20180419, end: 20190125
  12. AMOXAN [Suspect]
     Active Substance: AMOXAPINE
     Indication: PRODUCT USED FOR UNKNOWN INDICATION
     Dosage: 100 MG, DAILY DOSE
     Route: 048
     Dates: start: 20181227, end: 20190125
  13. LUNESTA [Concomitant]
     Active Substance: ESZOPICLONE
     Indication: PRODUCT USED FOR UNKNOWN INDICATION
     Dosage: 3 MG, DAILY DOSE
     Route: 048
     Dates: start: 20181213, end: 20181226
  14. MAGMITT [Concomitant]
     Active Substance: MAGNESIUM OXIDE
     Indication: PRODUCT USED FOR UNKNOWN INDICATION
     Dosage: 1500 MG, DAILY DOSE
     Route: 048
     Dates: start: 20180607, end: 20181129

REACTIONS (1)
  - Death [Fatal]
